FAERS Safety Report 5743500-4 (Version None)
Quarter: 2008Q2

REPORT INFORMATION
  Report Type: 
  Country: None (occurrence: None)
  Receive Date: 20080519
  Receipt Date: 20080519
  Transmission Date: 20081010
  Serious: Yes (Hospitalization)
  Sender: FDA-Public Use
  Company Number: None

PATIENT
  Age: 85 Year
  Sex: Female
  Weight: 48.5349 kg

DRUGS (1)
  1. DIGITEK 250MCG [Suspect]
     Indication: ARRHYTHMIA
     Dosage: 250MCG DAILY PO
     Route: 048
     Dates: start: 19850102, end: 20080402

REACTIONS (4)
  - BRADYCARDIA [None]
  - CARDIOACTIVE DRUG LEVEL INCREASED [None]
  - NAUSEA [None]
  - VOMITING [None]
